FAERS Safety Report 15127731 (Version 3)
Quarter: 2018Q4

REPORT INFORMATION
  Report Type: Report from Study
  Country: SE (occurrence: SE)
  Receive Date: 20180710
  Receipt Date: 20181207
  Transmission Date: 20190204
  Serious: Yes (Hospitalization, Other)
  Sender: FDA-Public Use
  Company Number: PHHY2018SE039050

PATIENT
  Age: 70 Year
  Sex: Female
  Weight: 49 kg

DRUGS (21)
  1. METOKLOPRAMID [Concomitant]
     Indication: NAUSEA
     Dosage: 10 MG, PRN
     Route: 048
     Dates: start: 20180605
  2. SENNA ALEXANDRINA [Concomitant]
     Active Substance: SENNA LEAF
     Indication: PROPHYLAXIS
     Dosage: 12 MG, PRN
     Route: 048
     Dates: start: 20180604
  3. BETAMETHASONE. [Concomitant]
     Active Substance: BETAMETHASONE
     Dosage: 2 MG, PRN
     Route: 048
     Dates: start: 20180611
  4. TRAMADOL. [Concomitant]
     Active Substance: TRAMADOL
     Indication: BACK PAIN
     Dosage: 100 MG, QD (50 MG 2 IN ONE DAY)
     Route: 048
     Dates: start: 20180416, end: 20180604
  5. TRAMADOL. [Concomitant]
     Active Substance: TRAMADOL
     Dosage: 50 MG, PRN
     Route: 048
     Dates: start: 20180604
  6. OLODATEROL [Concomitant]
     Active Substance: OLODATEROL
     Indication: CHRONIC OBSTRUCTIVE PULMONARY DISEASE
     Dosage: 2.5 MG, QD
     Dates: start: 20170302
  7. GLYCERYL TRINITRATE [Concomitant]
     Active Substance: NITROGLYCERIN
     Indication: ANGINA PECTORIS
     Dosage: 0.4 MG, PRN
     Route: 060
     Dates: start: 20180511
  8. ZOLPIDEM [Concomitant]
     Active Substance: ZOLPIDEM\ZOLPIDEM TARTRATE
     Indication: INSOMNIA
     Dosage: 10 MG, PRN
     Route: 048
     Dates: start: 20180307
  9. HYCAMTIN [Suspect]
     Active Substance: TOPOTECAN HYDROCHLORIDE
     Indication: SMALL CELL LUNG CANCER
     Dosage: 1.5 MG/M2, QD (DAY 1 TO 5 OF EACH 21 DAY CYCLE)
     Route: 042
     Dates: start: 20180604, end: 20180608
  10. BETAMETHASONE. [Concomitant]
     Active Substance: BETAMETHASONE
     Dosage: 4 MG, PRN
     Route: 048
     Dates: start: 20180609
  11. BETAMETHASONE. [Concomitant]
     Active Substance: BETAMETHASONE
     Dosage: 3 MG, PRN
     Route: 048
     Dates: start: 20180610
  12. FLUCONAZOL [Concomitant]
     Active Substance: FLUCONAZOLE
     Indication: OESOPHAGITIS
     Dosage: 200 MG, QD
     Route: 048
     Dates: start: 20180611, end: 20180624
  13. HYCAMTIN [Suspect]
     Active Substance: TOPOTECAN HYDROCHLORIDE
     Dosage: 1.12 MG/M2, QD (DAY 1-5 EACH 21 DAY CYCLE)
     Route: 042
     Dates: start: 20180716
  14. ACETYLSALICYLIC ACID [Concomitant]
     Active Substance: ASPIRIN
     Indication: THROMBOSIS PROPHYLAXIS
     Dosage: 75 MG, QD
     Route: 048
     Dates: start: 20171229
  15. NATRIUMPICOSULFAT [Concomitant]
     Indication: PROPHYLAXIS
     Dosage: 7.5 MG, PRN
     Route: 048
     Dates: start: 20180604
  16. BISOPROLOL [Concomitant]
     Active Substance: BISOPROLOL
     Indication: HYPERTENSION
     Dosage: 5 MG, QD (2.5 MG, 2 IN 1 D)
     Route: 048
     Dates: start: 20171228
  17. ISOSORBIDE MONONITRATE. [Concomitant]
     Active Substance: ISOSORBIDE MONONITRATE
     Indication: ANGINA PECTORIS
     Dosage: 30 MG, QD
     Route: 048
     Dates: start: 20171228
  18. SALBUTAMOL [Concomitant]
     Active Substance: ALBUTEROL
     Indication: CHRONIC OBSTRUCTIVE PULMONARY DISEASE
     Dosage: 0.1 MG, PRN
     Route: 055
     Dates: start: 20180303
  19. TIOTROPIUM [Concomitant]
     Active Substance: TIOTROPIUM
     Indication: CHRONIC OBSTRUCTIVE PULMONARY DISEASE
     Dosage: 2.5 UG, QD
     Route: 055
     Dates: start: 20170303
  20. BETAMETHASONE. [Concomitant]
     Active Substance: BETAMETHASONE
     Indication: PROPHYLAXIS OF NAUSEA AND VOMITING
     Dosage: 8 MG, PRN (PREMEDICATION PRIOR TO TOPOTECAN INFUSION)
     Route: 042
     Dates: start: 20180604
  21. BETAMETHASONE. [Concomitant]
     Active Substance: BETAMETHASONE
     Dosage: 2 MG, PRN
     Route: 048
     Dates: start: 20180612

REACTIONS (11)
  - Fatigue [Unknown]
  - Immune system disorder [Unknown]
  - White blood cell count decreased [Unknown]
  - C-reactive protein increased [Unknown]
  - Blood pressure increased [Unknown]
  - Klebsiella infection [Unknown]
  - Asthenia [Unknown]
  - Thrombocytopenia [Recovered/Resolved]
  - Decreased appetite [Unknown]
  - Febrile neutropenia [Recovered/Resolved]
  - Platelet count increased [Unknown]

NARRATIVE: CASE EVENT DATE: 20180617
